FAERS Safety Report 20409935 (Version 1)
Quarter: 2022Q1

REPORT INFORMATION
  Report Type: Spontaneous
  Country: HR (occurrence: HR)
  Receive Date: 20220201
  Receipt Date: 20220201
  Transmission Date: 20220423
  Serious: Yes (Other)
  Sender: FDA-Public Use
  Company Number: None

PATIENT
  Sex: Male

DRUGS (3)
  1. METHOTREXATE [Suspect]
     Active Substance: METHOTREXATE
     Indication: Juvenile idiopathic arthritis
     Dosage: INITIALLY RECEIVED FOR ALMOST 10 YEARS AND THEN DISCONTINUED
     Route: 065
  2. ADALIMUMAB [Suspect]
     Active Substance: ADALIMUMAB
     Indication: Juvenile idiopathic arthritis
     Dosage: 40 MILLIGRAM, BIWEEKLY
     Route: 058
  3. IMMUNOGLOBULIN [Concomitant]
     Indication: Juvenile idiopathic arthritis
     Dosage: UNK
     Route: 042

REACTIONS (4)
  - Lymphadenopathy mediastinal [Recovering/Resolving]
  - Interstitial lung disease [Recovering/Resolving]
  - Psoriasis [Recovering/Resolving]
  - Weight decreased [Recovering/Resolving]
